FAERS Safety Report 17014264 (Version 1)
Quarter: 2019Q4

REPORT INFORMATION
  Report Type: Spontaneous
  Country: US (occurrence: US)
  Receive Date: 20191111
  Receipt Date: 20191111
  Transmission Date: 20200122
  Serious: No
  Sender: FDA-Public Use
  Company Number: US-AJANTA PHARMA USA INC.-2076667

PATIENT
  Age: 79 Year
  Sex: Female

DRUGS (1)
  1. LANSOPRAZOLE (ANDA 203957) [Suspect]
     Active Substance: LANSOPRAZOLE

REACTIONS (3)
  - Diarrhoea [Unknown]
  - Intentional product misuse [Unknown]
  - Abdominal pain [Unknown]
